FAERS Safety Report 19328241 (Version 1)
Quarter: 2021Q2

REPORT INFORMATION
  Report Type: Spontaneous
  Country: US (occurrence: US)
  Receive Date: 20210528
  Receipt Date: 20210528
  Transmission Date: 20210717
  Serious: Yes (Hospitalization, Other)
  Sender: FDA-Public Use
  Company Number: US-ASTRAZENECA-2021A470596

PATIENT
  Sex: Male
  Weight: 83 kg

DRUGS (2)
  1. AMIODARONE [Suspect]
     Active Substance: AMIODARONE
     Route: 065
  2. BRILINTA [Suspect]
     Active Substance: TICAGRELOR
     Indication: MYOCARDIAL INFARCTION
     Dosage: TWO TIMES A DAY
     Route: 048
     Dates: start: 201810

REACTIONS (10)
  - Pain [Not Recovered/Not Resolved]
  - Blood pressure increased [Unknown]
  - Amnesia [Unknown]
  - Impaired work ability [Not Recovered/Not Resolved]
  - Pulmonary mass [Unknown]
  - Pneumonia [Unknown]
  - Contusion [Not Recovered/Not Resolved]
  - Testicular retraction [Unknown]
  - Haemorrhage [Not Recovered/Not Resolved]
  - Yawning [Recovered/Resolved]
